FAERS Safety Report 8456157-9 (Version None)
Quarter: 2012Q2

REPORT INFORMATION
  Report Type: 
  Country: None (occurrence: None)
  Receive Date: 20120621
  Receipt Date: 20120619
  Transmission Date: 20120825
  Serious: Yes (Death)
  Sender: FDA-Public Use
  Company Number: PHEH2012US012229

PATIENT
  Sex: Male

DRUGS (2)
  1. ZOMETA [Suspect]
     Indication: METASTASES TO BONE
     Dosage: 4 MG, TIW
     Route: 042
     Dates: start: 20110911
  2. ZOMETA [Suspect]
     Dosage: 4 MG, TIW
     Route: 042
     Dates: start: 20120503, end: 20120503

REACTIONS (1)
  - DEATH [None]
